FAERS Safety Report 10576993 (Version 2)
Quarter: 2014Q4

REPORT INFORMATION
  Report Type: Spontaneous
  Country: BE (occurrence: BE)
  Receive Date: 20141111
  Receipt Date: 20141113
  Transmission Date: 20150529
  Serious: Yes (Hospitalization)
  Sender: FDA-Public Use
  Company Number: BE-PFIZER INC-2014308799

PATIENT
  Age: 63 Year
  Sex: Female
  Weight: 58 kg

DRUGS (3)
  1. MEDROL [Concomitant]
     Active Substance: METHYLPREDNISOLONE
     Indication: POLYARTHRITIS
     Dosage: 4 MG, 1X/DAY, EVERY OTHER WEEK
     Route: 048
     Dates: start: 201305, end: 201408
  2. CELEBREX [Suspect]
     Active Substance: CELECOXIB
     Indication: POLYARTHRITIS
     Dosage: 100 MG, 1X/DAY
     Route: 048
     Dates: start: 201210
  3. GLUCOSAMINE SULFATE [Concomitant]
     Active Substance: GLUCOSAMINE SULFATE
     Dosage: 1.5 TEASPOON, 1X/DAY
     Route: 048
     Dates: start: 20121001

REACTIONS (3)
  - Lupus-like syndrome [Unknown]
  - Urinary tract infection [Unknown]
  - Nephrolithiasis [Recovering/Resolving]
